FAERS Safety Report 13700906 (Version 5)
Quarter: 2017Q3

REPORT INFORMATION
  Report Type: Spontaneous
  Country: US (occurrence: US)
  Receive Date: 20170629
  Receipt Date: 20170815
  Transmission Date: 20171127
  Serious: Yes (Death)
  Sender: FDA-Public Use
  Company Number: US-PFIZER INC-2017279867

PATIENT
  Age: 79 Year
  Sex: Male
  Weight: 59.1 kg

DRUGS (16)
  1. NYSTATIN. [Concomitant]
     Active Substance: NYSTATIN
     Dosage: 5 ML, 2X/DAY [SWISH + SWALLOW] [100000/ML SUSPENSION]
     Route: 048
  2. DIGOXIN. [Concomitant]
     Active Substance: DIGOXIN
     Dosage: 125 UG, DAILY, (125 MCG TABLET TAKE 1 PO DAILY)
     Route: 048
     Dates: start: 20170629
  3. FUROSEMIDE. [Concomitant]
     Active Substance: FUROSEMIDE
     Dosage: 20 MG, DAILY, (TAKE 1 PO DAILY)
     Route: 048
  4. TAMSULOSIN HCL [Concomitant]
     Active Substance: TAMSULOSIN
     Dosage: 0.4 MG, DAILY, (AS DIRECTED.)
     Route: 048
  5. SUTENT [Suspect]
     Active Substance: SUNITINIB MALATE
     Indication: GASTROINTESTINAL STROMAL TUMOUR
     Dosage: 50 MG, CYCLIC [DAILY FOR 28 DAYS ON/14 DAYS OFF]
     Route: 048
     Dates: start: 20170620
  6. METOPROLOL. [Concomitant]
     Active Substance: METOPROLOL
     Dosage: UNK
  7. PROAIR HFA [Concomitant]
     Active Substance: ALBUTEROL SULFATE
     Dosage: UNK [90 MCG HFA AEROSOL WITH ADAPTER (GRAM) TAKE 2 INHALATION(S) BY INHALATION AS DIRECTED]
     Route: 055
  8. SIMVASTATIN. [Concomitant]
     Active Substance: SIMVASTATIN
     Dosage: UNK UNK, 1X/DAY [TAKE 0.5 PO QHS]
     Route: 048
  9. NITROGLYCERIN. [Concomitant]
     Active Substance: NITROGLYCERIN
     Dosage: 0.4 MG, AS NEEDED, (0.4 MG TABLET, SUBLINGUAL SL PRN)
     Route: 060
  10. LISINOPRIL. [Concomitant]
     Active Substance: LISINOPRIL
     Dosage: 5.0 MG, DAILY, (2.5 MG TABLET TAKE 2 PO DAILY)
     Route: 048
  11. DILTIAZEM. [Concomitant]
     Active Substance: DILTIAZEM
     Dosage: 180 MG, 1X/DAY, (TAKE 1 CAPSULE PO QAM)
     Route: 048
  12. WARFARIN SODIUM. [Concomitant]
     Active Substance: WARFARIN SODIUM
     Dosage: UNK
     Route: 048
  13. SYMBICORT [Concomitant]
     Active Substance: BUDESONIDE\FORMOTEROL FUMARATE DIHYDRATE
     Dosage: UNK UNK, 2X/DAY (BUDESONIDE: 160MCG)/ (FORMOTEROL FUMARATE: 4.5 MCG) (2 INHALATION BID)
     Route: 055
  14. LASIX [Concomitant]
     Active Substance: FUROSEMIDE
     Dosage: UNK
  15. PLAVIX [Concomitant]
     Active Substance: CLOPIDOGREL BISULFATE
     Dosage: 75 MG, DAILY
     Route: 048
  16. METOPROLOL TARTRATE. [Concomitant]
     Active Substance: METOPROLOL TARTRATE
     Dosage: UNK UNK, 2X/DAY [TAKE 0.5 BID]
     Route: 048

REACTIONS (9)
  - Dysuria [Unknown]
  - Prothrombin level abnormal [Unknown]
  - Fall [Unknown]
  - Testicular cyst [Unknown]
  - Frequent bowel movements [Unknown]
  - Gait disturbance [Unknown]
  - Death [Fatal]
  - Malaise [Unknown]
  - Early satiety [Unknown]

NARRATIVE: CASE EVENT DATE: 20170712
